FAERS Safety Report 19990786 (Version 1)
Quarter: 2021Q4

REPORT INFORMATION
  Report Type: Spontaneous
  Country: IR (occurrence: IR)
  Receive Date: 20211025
  Receipt Date: 20211025
  Transmission Date: 20220303
  Serious: Yes (Death, Other)
  Sender: FDA-Public Use
  Company Number: IR-ASTELLAS-2021US040101

PATIENT
  Sex: Female

DRUGS (1)
  1. AMBISOME [Suspect]
     Active Substance: AMPHOTERICIN B
     Indication: Product used for unknown indication
     Route: 065

REACTIONS (7)
  - Urinary retention [Fatal]
  - Anal haemorrhage [Unknown]
  - Renal injury [Unknown]
  - Liver injury [Unknown]
  - Epistaxis [Unknown]
  - Generalised oedema [Unknown]
  - Pain [Unknown]
